FAERS Safety Report 11317537 (Version 2)
Quarter: 2015Q3

REPORT INFORMATION
  Report Type: Spontaneous
  Country: US (occurrence: US)
  Receive Date: 20150728
  Receipt Date: 20150902
  Transmission Date: 20151125
  Serious: Yes (Other)
  Sender: FDA-Public Use
  Company Number: US-PFIZER INC-2015242979

PATIENT
  Age: 68 Year
  Sex: Female
  Weight: 107 kg

DRUGS (3)
  1. COUMADINE [Concomitant]
     Active Substance: WARFARIN SODIUM
     Dosage: 4 MG, 1 TABLET ONCE A DAY AND ON MONDAY SHE TAKES HALF OF ONE
  2. TIKOSYN [Suspect]
     Active Substance: DOFETILIDE
     Indication: ATRIAL FIBRILLATION
     Dosage: 250 ?G, 2X/DAY
     Route: 048
  3. LIPITOR [Concomitant]
     Active Substance: ATORVASTATIN CALCIUM
     Dosage: UNK

REACTIONS (7)
  - Asthenia [Unknown]
  - Dizziness [Unknown]
  - Cardiac flutter [Recovered/Resolved]
  - Gait disturbance [Not Recovered/Not Resolved]
  - Hypothyroidism [Unknown]
  - Weight decreased [Unknown]
  - Pain in extremity [Recovered/Resolved]
